FAERS Safety Report 9461540 (Version 1)
Quarter: 2013Q3

REPORT INFORMATION
  Report Type: Spontaneous
  Country: DE (occurrence: DE)
  Receive Date: 20130816
  Receipt Date: 20130816
  Transmission Date: 20140515
  Serious: Yes (Other)
  Sender: FDA-Public Use
  Company Number: DE-BRISTOL-MYERS SQUIBB COMPANY-19186428

PATIENT
  Age: 46 Year
  Sex: Female

DRUGS (2)
  1. LYSODREN TABS 500 MG [Suspect]
     Indication: ADRENOCORTICAL CARCINOMA
     Dosage: 3X2 TABLETS
     Dates: start: 201305, end: 20130723
  2. HYDROCORTISONE [Suspect]

REACTIONS (5)
  - Liver function test abnormal [Unknown]
  - Anaemia [Unknown]
  - Blood alkaline phosphatase increased [None]
  - Alanine aminotransferase increased [None]
  - Gamma-glutamyltransferase increased [None]
